FAERS Safety Report 15654532 (Version 1)
Quarter: 2018Q4

REPORT INFORMATION
  Report Type: Spontaneous
  Country: US (occurrence: US)
  Receive Date: 20181126
  Receipt Date: 20181126
  Transmission Date: 20190205
  Serious: No
  Sender: FDA-Public Use
  Company Number: US-CELGENEUS-USA-20181106036

PATIENT
  Age: 23 Year
  Sex: Female
  Weight: 114 kg

DRUGS (1)
  1. APREMILAST [Suspect]
     Active Substance: APREMILAST
     Indication: PSORIASIS
     Dosage: STARTER PACK
     Route: 048
     Dates: start: 20181113

REACTIONS (6)
  - Muscle spasms [Unknown]
  - Vomiting [Unknown]
  - Menstruation delayed [Unknown]
  - Nausea [Unknown]
  - Vaginal haemorrhage [Unknown]
  - Diarrhoea [Unknown]

NARRATIVE: CASE EVENT DATE: 201811
